FAERS Safety Report 9196779 (Version 1)
Quarter: 2013Q1

REPORT INFORMATION
  Report Type: Spontaneous
  Country: US (occurrence: US)
  Receive Date: 20130328
  Receipt Date: 20130328
  Transmission Date: 20140127
  Serious: Yes (Other)
  Sender: FDA-Public Use
  Company Number: US-SANOFI-AVENTIS-200711711US

PATIENT
  Sex: 0

DRUGS (2)
  1. FUROSEMIDE [Suspect]
     Dosage: DOSE AS USED: UNK
  2. NO MENTION OF CONCOMITANT DRUG [Concomitant]

REACTIONS (2)
  - Pneumonitis [Unknown]
  - Alveolitis [Unknown]
